FAERS Safety Report 24155471 (Version 2)
Quarter: 2024Q3

REPORT INFORMATION
  Report Type: Report from Study
  Country: US (occurrence: US)
  Receive Date: 20240731
  Receipt Date: 20240827
  Transmission Date: 20241016
  Serious: Yes (Hospitalization)
  Sender: ROCHE
  Company Number: US-ROCHE-RCA5176768

PATIENT
  Age: 80 Year
  Sex: Male
  Weight: 110.22 kg

DRUGS (11)
  1. ESBRIET [Suspect]
     Active Substance: PIRFENIDONE
     Indication: Idiopathic pulmonary fibrosis
     Route: 048
  2. ASPIRIN [Concomitant]
     Active Substance: ASPIRIN
  3. MINERALS\VITAMINS [Concomitant]
     Active Substance: MINERALS\VITAMINS
  4. MELATONIN [Concomitant]
     Active Substance: MELATONIN
  5. PREDNISONE [Concomitant]
     Active Substance: PREDNISONE
  6. LOSARTAN [Concomitant]
     Active Substance: LOSARTAN\LOSARTAN POTASSIUM
  7. ATORVASTATIN [Concomitant]
     Active Substance: ATORVASTATIN
  8. CLINDAMYCIN HYDROCHLORIDE [Concomitant]
     Active Substance: CLINDAMYCIN HYDROCHLORIDE
  9. LOSARTAN [Concomitant]
     Active Substance: LOSARTAN\LOSARTAN POTASSIUM
  10. FRUSEMIDE BERK [FUROSEMIDE] [Concomitant]
  11. WARFARIN [Concomitant]
     Active Substance: WARFARIN

REACTIONS (6)
  - Illness [Unknown]
  - Dyspnoea [Unknown]
  - Wound [Recovering/Resolving]
  - Decubitus ulcer [Not Recovered/Not Resolved]
  - Intentional product misuse [Unknown]
  - Productive cough [Not Recovered/Not Resolved]
